FAERS Safety Report 24742186 (Version 1)
Quarter: 2024Q4

REPORT INFORMATION
  Report Type: Spontaneous
  Country: US (occurrence: US)
  Receive Date: 20241217
  Receipt Date: 20241217
  Transmission Date: 20250114
  Serious: No
  Sender: MACLEODS
  Company Number: US-MACLEODS PHARMA-MAC2024050719

PATIENT

DRUGS (1)
  1. TRIAMCINOLONE [Suspect]
     Active Substance: TRIAMCINOLONE
     Indication: Product used for unknown indication
     Dosage: PKG SIZE: 80 G, NDC NO.-16714-986-03
     Route: 061

REACTIONS (2)
  - Product dose omission issue [Unknown]
  - Product container issue [Unknown]
